FAERS Safety Report 23087719 (Version 3)
Quarter: 2024Q2

REPORT INFORMATION
  Report Type: Spontaneous
  Country: EG (occurrence: EG)
  Receive Date: 20231020
  Receipt Date: 20240426
  Transmission Date: 20240716
  Serious: Yes (Other)
  Sender: FDA-Public Use
  Company Number: EG-NOVOPROD-1125996

PATIENT
  Sex: Male
  Weight: 86 kg

DRUGS (5)
  1. NOVORAPID [Suspect]
     Active Substance: INSULIN ASPART
     Indication: Diabetes mellitus
     Dosage: UNK
     Route: 058
  2. NOVORAPID [Suspect]
     Active Substance: INSULIN ASPART
     Dosage: UNK
     Route: 058
  3. NOVORAPID [Suspect]
     Active Substance: INSULIN ASPART
     Dosage: 80 IU, QD (25 UNITS IN THE MORNING, 25 UNITS IN THE AFTERNOON, AND 30 UNITS AT NIGHT)
     Route: 058
  4. LANTUS [Concomitant]
     Active Substance: INSULIN GLARGINE
     Indication: Product used for unknown indication
     Dosage: UNK
     Dates: start: 19921226
  5. MIXTARD HUMAN 70/30 [Concomitant]
     Active Substance: INSULIN HUMAN
     Indication: Diabetes mellitus
     Dosage: 60 IU, QD (20 UNITS IN THE MORNING, 20 UNITS IN THE AFTERNOON, AND 20 UNITS AT NIGHT)
     Dates: start: 19921226

REACTIONS (10)
  - Coronary arterial stent insertion [Recovered/Resolved]
  - Coronary arterial stent insertion [Recovered/Resolved]
  - Intraocular lens implant [Not Recovered/Not Resolved]
  - Cataract operation [Unknown]
  - Cataract operation [Unknown]
  - Eye laser surgery [Unknown]
  - Visual impairment [Not Recovered/Not Resolved]
  - Angiopathy [Not Recovered/Not Resolved]
  - Erectile dysfunction [Not Recovered/Not Resolved]
  - Hyperglycaemia [Unknown]

NARRATIVE: CASE EVENT DATE: 20140101
